FAERS Safety Report 9386172 (Version 2)
Quarter: 2013Q3

REPORT INFORMATION
  Report Type: Spontaneous
  Country: GB (occurrence: GB)
  Receive Date: 20130707
  Receipt Date: 20130820
  Transmission Date: 20140515
  Serious: Yes (Hospitalization)
  Sender: FDA-Public Use
  Company Number: GB-UCBSA-090689

PATIENT
  Age: 75 Year
  Sex: Female

DRUGS (1)
  1. KEPPRA [Suspect]
     Dosage: DOSE- 2X500MG, NO OF DOSES:4-6, FREQUENCY 6 HOURS
     Route: 048
     Dates: start: 20130621, end: 20130622

REACTIONS (4)
  - Confusional state [Recovering/Resolving]
  - Disorientation [Recovering/Resolving]
  - Medication error [Unknown]
  - Overdose [Unknown]
